FAERS Safety Report 9640038 (Version 1)
Quarter: 2013Q4

REPORT INFORMATION
  Report Type: Spontaneous
  Country: FR (occurrence: FR)
  Receive Date: 20131023
  Receipt Date: 20131023
  Transmission Date: 20140711
  Serious: Yes (Life-Threatening)
  Sender: FDA-Public Use
  Company Number: PHHY2013FR119073

PATIENT
  Age: 66 Year
  Sex: Male

DRUGS (4)
  1. TEGRETOL [Suspect]
     Dosage: 200 MG, BID
     Route: 048
     Dates: start: 20130911
  2. GARDENAL [Concomitant]
     Dosage: UNK UKN, UNK
  3. ANAFRANIL [Concomitant]
     Dosage: UNK UKN, UNK
  4. XANAX [Concomitant]
     Dosage: UNK UKN, UNK

REACTIONS (1)
  - Toxic encephalopathy [Recovered/Resolved]
